FAERS Safety Report 7242988 (Version 3)
Quarter: 2014Q1

REPORT INFORMATION
  Report Type: Spontaneous
  Country: US (occurrence: US)
  Receive Date: 20100112
  Receipt Date: 20140124
  Transmission Date: 20141002
  Serious: Yes (Hospitalization, Other)
  Sender: FDA-Public Use
  Company Number: US-BAYER-201010616NA

PATIENT
  Age: 15 Year
  Sex: Female
  Weight: 61 kg

DRUGS (9)
  1. YAZ [Suspect]
     Indication: MENSTRUATION IRREGULAR
     Route: 048
     Dates: start: 200610, end: 200701
  2. YASMIN [Suspect]
  3. ZOLOFT [Concomitant]
     Indication: DEPRESSION
     Dosage: UNK
     Dates: start: 2007
  4. ZOLOFT [Concomitant]
     Indication: ANXIETY
  5. TRAZODONE [Concomitant]
     Indication: INSOMNIA
     Dosage: UNK
     Dates: start: 2007
  6. MAXAIR [Concomitant]
     Indication: ASTHMA
     Dosage: UNK
     Dates: start: 2006
  7. ASMANEX [Concomitant]
     Indication: ASTHMA
     Dosage: UNK
     Dates: start: 2006
  8. ALPRAZOLAM [Concomitant]
     Indication: ANXIETY
     Dosage: UNK
     Dates: start: 2007
  9. ZYRTEC [Concomitant]
     Indication: MULTIPLE ALLERGIES
     Dosage: UNK
     Dates: start: 2006

REACTIONS (6)
  - Gallbladder disorder [None]
  - Abdominal pain upper [None]
  - Mental disorder [None]
  - Cholecystitis chronic [None]
  - Depression [None]
  - Anxiety [None]
